FAERS Safety Report 24196424 (Version 1)
Quarter: 2024Q3

REPORT INFORMATION
  Report Type: Spontaneous
  Country: FR (occurrence: FR)
  Receive Date: 20240810
  Receipt Date: 20240810
  Transmission Date: 20241017
  Serious: Yes (Other)
  Sender: NOVITIUM PHARMA
  Company Number: FR-NOVITIUMPHARMA-2024FRNVP01514

PATIENT
  Age: 33 Year
  Sex: Female

DRUGS (6)
  1. PYRAZINAMIDE [Suspect]
     Active Substance: PYRAZINAMIDE
     Indication: Meningitis tuberculous
  2. ISONIAZID [Concomitant]
     Active Substance: ISONIAZID
     Indication: Meningitis tuberculous
  3. RIFAMPIN [Concomitant]
     Active Substance: RIFAMPIN
     Indication: Meningitis tuberculous
  4. PREDNISOLONE [Concomitant]
     Active Substance: PREDNISOLONE
     Indication: Meningitis tuberculous
     Dosage: DURING 4 WEEKS
  5. PREDNISOLONE [Concomitant]
     Active Substance: PREDNISOLONE
  6. PREDNISOLONE [Concomitant]
     Active Substance: PREDNISOLONE
     Dosage: DURING 4 WEEKS

REACTIONS (2)
  - Immune reconstitution inflammatory syndrome [Recovering/Resolving]
  - Paradoxical drug reaction [Recovering/Resolving]
